FAERS Safety Report 9703035 (Version 2)
Quarter: 2013Q4

REPORT INFORMATION
  Report Type: Spontaneous
  Country: US (occurrence: US)
  Receive Date: 20131122
  Receipt Date: 20131126
  Transmission Date: 20140711
  Serious: No
  Sender: FDA-Public Use
  Company Number: US-009507513-1311USA004055

PATIENT
  Age: 71 Year
  Sex: Male

DRUGS (2)
  1. AZASITE [Suspect]
     Indication: PROPHYLAXIS
     Dosage: ONE DROP IN THE AFFECTED EYE ONCE DAILY
     Route: 047
     Dates: start: 20131023
  2. PREDNISOLONE ACETATE [Concomitant]
     Route: 047

REACTIONS (4)
  - Eye irritation [Recovering/Resolving]
  - Eye pain [Recovering/Resolving]
  - Drug prescribing error [Unknown]
  - Inappropriate schedule of drug administration [Unknown]
